FAERS Safety Report 5226077-1 (Version None)
Quarter: 2007Q1

REPORT INFORMATION
  Report Type: 
  Country: None (occurrence: None)
  Receive Date: 20070129
  Receipt Date: 20070111
  Transmission Date: 20070707
  Serious: Yes (Life-Threatening, Hospitalization)
  Sender: FDA-Public Use
  Company Number: DSA_29242_2007

PATIENT
  Age: 56 Year
  Sex: Female

DRUGS (3)
  1. TAVOR            /00273201/ [Suspect]
     Dosage: DF ONCE PO
     Route: 048
     Dates: start: 20070110, end: 20070110
  2. DOXEPIN HCL [Suspect]
     Dosage: DF ONCE PO
     Route: 048
     Dates: start: 20070110, end: 20070110
  3. VENLAFAXINE HCL [Suspect]
     Dosage: DF ONCE PO
     Route: 048
     Dates: start: 20070110, end: 20070110

REACTIONS (5)
  - ARRHYTHMIA [None]
  - MULTIPLE DRUG OVERDOSE [None]
  - SOPOR [None]
  - SUICIDE ATTEMPT [None]
  - TACHYCARDIA [None]
